FAERS Safety Report 16633472 (Version 2)
Quarter: 2019Q3

REPORT INFORMATION
  Report Type: Report from Study
  Country: US (occurrence: US)
  Receive Date: 20190725
  Receipt Date: 20190726
  Transmission Date: 20191004
  Serious: Yes (Hospitalization)
  Sender: FDA-Public Use
  Company Number: US-GILEAD-2019-0419549

PATIENT
  Age: 64 Year
  Sex: Female

DRUGS (3)
  1. NIFEDIPINE. [Concomitant]
     Active Substance: NIFEDIPINE
  2. AMBRISENTAN [Suspect]
     Active Substance: AMBRISENTAN
     Indication: PRODUCT USED FOR UNKNOWN INDICATION
     Dosage: 10 MG, QD
     Route: 048
     Dates: start: 20171214
  3. ELIQUIS [Concomitant]
     Active Substance: APIXABAN

REACTIONS (5)
  - Oxygen saturation decreased [Unknown]
  - Vomiting [Unknown]
  - Dizziness [Unknown]
  - Product use issue [Not Recovered/Not Resolved]
  - Dyspnoea [Unknown]

NARRATIVE: CASE EVENT DATE: 20190717
